FAERS Safety Report 14061561 (Version 1)
Quarter: 2017Q4

REPORT INFORMATION
  Report Type: Spontaneous
  Country: PT (occurrence: PT)
  Receive Date: 20171009
  Receipt Date: 20171009
  Transmission Date: 20180321
  Serious: Yes (Death)
  Sender: FDA-Public Use
  Company Number: PT-ROCHE-2001850

PATIENT
  Age: 73 Year
  Sex: Male
  Weight: 68 kg

DRUGS (9)
  1. ESBRIET [Suspect]
     Active Substance: PIRFENIDONE
     Indication: IDIOPATHIC PULMONARY FIBROSIS
     Dosage: THE USUAL
     Route: 048
  2. OXYGEN. [Concomitant]
     Active Substance: OXYGEN
  3. CIALIS [Concomitant]
     Active Substance: TADALAFIL
  4. SILODOSINE [Concomitant]
     Active Substance: SILODOSIN
  5. ESTAZOLAM. [Concomitant]
     Active Substance: ESTAZOLAM
  6. ESOMEPRAZOL [Concomitant]
     Active Substance: ESOMEPRAZOLE
  7. SPIRIVA [Concomitant]
     Active Substance: TIOTROPIUM BROMIDE MONOHYDRATE
  8. PREDNISOLONE. [Concomitant]
     Active Substance: PREDNISOLONE
     Route: 065
  9. ATORVASTATINA [Concomitant]
     Active Substance: ATORVASTATIN

REACTIONS (1)
  - Death [Fatal]
